FAERS Safety Report 18777956 (Version 4)
Quarter: 2021Q2

REPORT INFORMATION
  Report Type: Report from Study
  Country: CO (occurrence: CO)
  Receive Date: 20210123
  Receipt Date: 20210612
  Transmission Date: 20210717
  Serious: Yes (Life-Threatening, Hospitalization)
  Sender: FDA-Public Use
  Company Number: NVSC2021CO012867

PATIENT
  Age: 69 Year
  Sex: Male
  Weight: 84 kg

DRUGS (2)
  1. COSENTYX [Suspect]
     Active Substance: SECUKINUMAB
     Dosage: 150 MG, QMO
     Route: 058
     Dates: start: 20180327
  2. COSENTYX [Suspect]
     Active Substance: SECUKINUMAB
     Indication: ANKYLOSING SPONDYLITIS
     Dosage: 150 MG, QMO
     Route: 058
     Dates: start: 20171107

REACTIONS (11)
  - Pyrexia [Recovering/Resolving]
  - Dyspnoea [Unknown]
  - Chills [Recovering/Resolving]
  - Swelling [Unknown]
  - Malaise [Unknown]
  - Peripheral swelling [Unknown]
  - Hypersensitivity [Unknown]
  - COVID-19 [Unknown]
  - Feeling hot [Unknown]
  - Pain [Recovering/Resolving]
  - Cough [Unknown]

NARRATIVE: CASE EVENT DATE: 20201212
